FAERS Safety Report 21061108 (Version 2)
Quarter: 2022Q3

REPORT INFORMATION
  Report Type: Spontaneous
  Country: US (occurrence: US)
  Receive Date: 20220709
  Receipt Date: 20220711
  Transmission Date: 20221027
  Serious: No
  Sender: FDA-Public Use
  Company Number: US-SA-2022SA263594

PATIENT
  Age: 48 Year
  Sex: Male

DRUGS (2)
  1. FABRAZYME [Suspect]
     Active Substance: AGALSIDASE BETA
     Indication: Fabry^s disease
     Dosage: 35 MG, QOW, STRENGTH: 35 MG
     Route: 042
     Dates: start: 202011
  2. FABRAZYME [Suspect]
     Active Substance: AGALSIDASE BETA
     Dosage: 30 MG, QOW, STRENGTH: 5 MG
     Route: 042
     Dates: start: 202011

REACTIONS (1)
  - Left ventricular end-diastolic pressure decreased [Unknown]
